FAERS Safety Report 10013879 (Version 1)
Quarter: 2014Q1

REPORT INFORMATION
  Report Type: Report from Study
  Country: CN (occurrence: CN)
  Receive Date: 20140316
  Receipt Date: 20140316
  Transmission Date: 20141002
  Serious: Yes (Hospitalization)
  Sender: FDA-Public Use
  Company Number: CN-MYLANLABS-2014S1005045

PATIENT
  Age: 22 Year
  Sex: Female

DRUGS (6)
  1. PREDNISONE [Suspect]
     Indication: SYSTEMIC LUPUS ERYTHEMATOSUS
     Dosage: 50-60 MG/DAY
     Route: 065
  2. METHYLPREDNISOLONE [Suspect]
     Indication: SYSTEMIC LUPUS ERYTHEMATOSUS
     Dosage: 2 COURSES OF PULSE THERAPY
     Route: 065
  3. HYDROXYCHLOROQUINE [Suspect]
     Indication: SYSTEMIC LUPUS ERYTHEMATOSUS
     Dosage: 0.2 BID
     Route: 065
  4. CICLOSPORIN [Suspect]
     Route: 065
  5. DAPSONE [Suspect]
     Route: 065
  6. MYCOPHENOLATE MOFETIL [Suspect]
     Route: 065

REACTIONS (1)
  - Listeriosis [Recovered/Resolved]
